FAERS Safety Report 8404021 (Version 3)
Quarter: 2013Q4

REPORT INFORMATION
  Report Type: Spontaneous
  Country: US (occurrence: None)
  Receive Date: 20111227
  Receipt Date: 20131226
  Transmission Date: 20140711
  Serious: Yes (Other)
  Sender: FDA-Public Use
  Company Number: PHEH2011US03450

PATIENT
  Age: 54 Year
  Sex: Female
  Weight: 67.6 kg

DRUGS (7)
  1. GILENYA [Suspect]
     Indication: RELAPSING-REMITTING MULTIPLE SCLEROSIS
     Dosage: 0.5 MG, QD, ORAL
     Route: 048
     Dates: start: 201010
  2. ANTIVERT (MECLOZINE HYDROCHLORIDE, NICOTINIC ACID) [Concomitant]
  3. BACLOFEN [Concomitant]
  4. LIDODERM (LIDOCAINE) [Concomitant]
  5. LUNESTA (ESZOPICLONE) [Concomitant]
  6. NEURONTIN (GABAPENTIN) [Concomitant]
  7. PROVIGIL (MODAFINIL) [Concomitant]

REACTIONS (2)
  - Erythema [None]
  - Burning sensation [None]
